FAERS Safety Report 24278544 (Version 1)
Quarter: 2024Q3

REPORT INFORMATION
  Report Type: Spontaneous
  Country: CA (occurrence: CA)
  Receive Date: 20240903
  Receipt Date: 20240903
  Transmission Date: 20241016
  Serious: Yes (Hospitalization)
  Sender: FRESENIUS KABI
  Company Number: CA-FreseniusKabi-FK202413149

PATIENT
  Age: 73 Year
  Sex: Male

DRUGS (3)
  1. IRINOTECAN HYDROCHLORIDE [Suspect]
     Active Substance: IRINOTECAN HYDROCHLORIDE
     Indication: Product used for unknown indication
     Dosage: DOSAGE FORM-SOLUTION INTRAVENOUS
  2. LEUCOVORIN [Suspect]
     Active Substance: LEUCOVORIN\LEUCOVORIN CALCIUM
     Indication: Product used for unknown indication
     Dosage: FOA-NOT SPECIFIED
  3. FLUOROURACIL [Suspect]
     Active Substance: FLUOROURACIL
     Indication: Product used for unknown indication
     Dosage: FOA-NOT SPECIFIED

REACTIONS (4)
  - Febrile neutropenia [Recovered/Resolved]
  - Intensive care [Recovered/Resolved]
  - Pyelonephritis [Recovered/Resolved]
  - Septic shock [Recovered/Resolved]
